FAERS Safety Report 19488895 (Version 4)
Quarter: 2022Q2

REPORT INFORMATION
  Report Type: Report from Study
  Country: FR (occurrence: None)
  Receive Date: 20210702
  Receipt Date: 20220615
  Transmission Date: 20220721
  Serious: Yes (Death, Hospitalization)
  Sender: FDA-Public Use
  Company Number: FR-ROCHE-2856030

PATIENT
  Age: 74 Year
  Sex: Male

DRUGS (3)
  1. ATEZOLIZUMAB [Suspect]
     Active Substance: ATEZOLIZUMAB
     Indication: Non-small cell lung cancer
     Dosage: DATE OF LAST ADMINISTRATION OF STUDY TREATMENT  14 JUN 2021
     Route: 041
     Dates: start: 20210614
  2. PACLITAXEL [Suspect]
     Active Substance: PACLITAXEL
     Indication: Non-small cell lung cancer
     Dosage: DATE OF LAST ADMINISTRATION OF STUDY TREATMENT  14 JUN 2021
     Route: 042
     Dates: start: 20210614
  3. CARBOPLATIN [Suspect]
     Active Substance: CARBOPLATIN
     Indication: Non-small cell lung cancer
     Dosage: DATE OF LAST ADMINISTRATION OF STUDY TREATMENT  14 JUN 2021?AUC 6 EVERY 4 WEEK
     Route: 042
     Dates: start: 20210614

REACTIONS (2)
  - Pneumonia [Fatal]
  - Immune-mediated encephalitis [Fatal]

NARRATIVE: CASE EVENT DATE: 20210620
